FAERS Safety Report 8789777 (Version 1)
Quarter: 2012Q4

REPORT INFORMATION
  Report Type: Spontaneous
  Country: US (occurrence: None)
  Receive Date: 20120911
  Receipt Date: 20120911
  Transmission Date: 20130627
  Serious: Yes (Death, Hospitalization)
  Sender: FDA-Public Use
  Company Number: None

PATIENT
  Sex: Male
  Weight: 70.6 kg

DRUGS (1)
  1. PACLITAXEL [Suspect]
     Dates: start: 20110707

REACTIONS (5)
  - Fall [None]
  - Asthenia [None]
  - Hypophagia [None]
  - Musculoskeletal pain [None]
  - Constipation [None]
